FAERS Safety Report 8319037-5 (Version None)
Quarter: 2012Q2

REPORT INFORMATION
  Report Type: 
  Country: None (occurrence: None)
  Receive Date: 20120426
  Receipt Date: 20120426
  Transmission Date: 20120825
  Serious: No
  Sender: FDA-Public Use
  Company Number: None

PATIENT
  Age: 9 Year
  Sex: Male

DRUGS (1)
  1. FOCALIN XR [Suspect]
     Dates: start: 20120130, end: 20120319

REACTIONS (2)
  - INCORRECT DOSE ADMINISTERED [None]
  - CAPSULE PHYSICAL ISSUE [None]
